FAERS Safety Report 9293761 (Version 2)
Quarter: 2013Q4

REPORT INFORMATION
  Report Type: Spontaneous
  Country: GB (occurrence: GB)
  Receive Date: 20130516
  Receipt Date: 20131017
  Transmission Date: 20140711
  Serious: Yes (Life-Threatening, Other)
  Sender: FDA-Public Use
  Company Number: GB-B.I. PHARMACEUTICALS,INC./RIDGEFIELD-2013-UK-01098UK

PATIENT
  Age: 72 Year
  Sex: Male
  Weight: 89 kg

DRUGS (2)
  1. PRADAXA [Suspect]
     Indication: ATRIAL FIBRILLATION
     Dosage: 300 MG
     Route: 048
     Dates: start: 20130313, end: 20130424
  2. FLECAINIDE [Concomitant]
     Indication: ATRIAL FIBRILLATION
     Dosage: 100 MG
     Route: 048
     Dates: start: 20130118

REACTIONS (2)
  - Deep vein thrombosis [Not Recovered/Not Resolved]
  - Local swelling [Unknown]
